FAERS Safety Report 22386269 (Version 1)
Quarter: 2023Q2

REPORT INFORMATION
  Report Type: Spontaneous
  Country: US (occurrence: US)
  Receive Date: 20230530
  Receipt Date: 20230530
  Transmission Date: 20230722
  Serious: Yes (Other)
  Sender: FDA-Public Use
  Company Number: US-009507513-2305USA008493

PATIENT
  Age: 49 Year
  Sex: Female

DRUGS (1)
  1. KEYTRUDA [Suspect]
     Active Substance: PEMBROLIZUMAB
     Dosage: EVERY TWELVE WEEKS

REACTIONS (2)
  - Coeliac disease [Recovering/Resolving]
  - Inappropriate schedule of product administration [Unknown]
